FAERS Safety Report 12606218 (Version 1)
Quarter: 2016Q3

REPORT INFORMATION
  Report Type: Spontaneous
  Country: US (occurrence: None)
  Receive Date: 20160728
  Receipt Date: 20160728
  Transmission Date: 20161109
  Serious: No
  Sender: FDA-Public Use
  Company Number: None

PATIENT
  Age: 62 Year
  Sex: Male

DRUGS (1)
  1. HARVONI [Suspect]
     Active Substance: LEDIPASVIR\SOFOSBUVIR
     Indication: CHRONIC HEPATITIS C

REACTIONS (4)
  - Swelling [None]
  - Gastrooesophageal reflux disease [None]
  - Erythema [None]
  - Abdominal discomfort [None]

NARRATIVE: CASE EVENT DATE: 20160727
